FAERS Safety Report 8901971 (Version 1)
Quarter: 2012Q4

REPORT INFORMATION
  Report Type: 
  Country: DE (occurrence: DE)
  Receive Date: 20121109
  Receipt Date: 20121109
  Transmission Date: 20130627
  Serious: Yes (Hospitalization)
  Sender: FDA-Public Use
  Company Number: DE-009507513-1211DEU003601

PATIENT
  Age: 65 Year
  Sex: Male
  Weight: 113 kg

DRUGS (8)
  1. VELMETIA [Suspect]
     Indication: DIABETES MELLITUS
     Dosage: UNK
     Route: 048
     Dates: start: 2010
  2. ALLOPURINOL [Concomitant]
     Indication: HYPERURICAEMIA
     Dosage: 100 mg, UNK
     Route: 048
     Dates: start: 2002
  3. RAMIPRIL [Concomitant]
     Indication: HYPERTENSION
     Dosage: 10 mg, UNK
     Route: 048
     Dates: start: 2008
  4. SOTALOL HYDROCHLORIDE [Concomitant]
     Indication: ARRHYTHMIA
     Dosage: 160 mg, UNK
     Route: 048
     Dates: start: 2002
  5. GLIMEPIRIDE [Concomitant]
     Indication: DIABETES MELLITUS
     Dosage: 1 mg, UNK
     Route: 048
     Dates: start: 2004
  6. METFORMIN [Concomitant]
     Indication: DIABETES MELLITUS
     Dosage: UNK
     Route: 048
     Dates: start: 2007, end: 2010
  7. OMEP [Concomitant]
     Dosage: 20 mg, qd
     Route: 048
  8. NITRENDIPINE [Concomitant]
     Dosage: 20 mg, qd
     Route: 048

REACTIONS (2)
  - Pancreatitis [Not Recovered/Not Resolved]
  - Gingivitis [Not Recovered/Not Resolved]
